FAERS Safety Report 19879241 (Version 1)
Quarter: 2021Q3

REPORT INFORMATION
  Report Type: Spontaneous
  Country: US (occurrence: US)
  Receive Date: 20210923
  Receipt Date: 20210923
  Transmission Date: 20211014
  Serious: Yes (Other)
  Sender: FDA-Public Use
  Company Number: US-BLUEPRINT MEDICINES CORPORATION-SP-US-2021-001654

PATIENT
  Age: 74 Year
  Sex: Male

DRUGS (1)
  1. AYVAKIT [Suspect]
     Active Substance: AVAPRITINIB
     Indication: SYSTEMIC MASTOCYTOSIS
     Route: 048
     Dates: start: 20210826, end: 20210910

REACTIONS (4)
  - Peripheral swelling [Unknown]
  - Hallucination, visual [Not Recovered/Not Resolved]
  - Cognitive disorder [Not Recovered/Not Resolved]
  - White blood cell count decreased [Unknown]
